FAERS Safety Report 4725118-5 (Version None)
Quarter: 2005Q3

REPORT INFORMATION
  Report Type: 
  Country: None (occurrence: None)
  Receive Date: 20050726
  Receipt Date: 20050719
  Transmission Date: 20060218
  Serious: Yes (Hospitalization)
  Sender: FDA-Public Use
  Company Number: GXBR2005US01231

PATIENT
  Age: 73 Year
  Sex: Female

DRUGS (7)
  1. AMOXICILLIN [Suspect]
     Dosage: 500 MG, TID, ORAL
     Route: 048
     Dates: start: 20050201
  2. LISINOPRIL [Concomitant]
  3. CARDIZEM CD [Concomitant]
  4. NORVASC/DEN/ (AMLODIPINE BESILATE) [Concomitant]
  5. ATENOLOL [Concomitant]
  6. WARFARIN SODIUM [Concomitant]
  7. HYDROCHLOROTHIAZIDE [Concomitant]

REACTIONS (1)
  - DELUSION [None]
